FAERS Safety Report 4699328-X (Version None)
Quarter: 2005Q2

REPORT INFORMATION
  Report Type: 
  Country: None (occurrence: None)
  Receive Date: 20050624
  Receipt Date: 20050614
  Transmission Date: 20051028
  Serious: Yes (Other)
  Sender: FDA-Public Use
  Company Number: AU-GLAXOSMITHKLINE-B0384596A

PATIENT
  Age: 57 Year
  Sex: Female
  Weight: 68 kg

DRUGS (14)
  1. LANOXIN [Suspect]
     Dosage: 1U PER DAY
     Route: 048
     Dates: start: 19840728, end: 19840814
  2. PROPYLTHIOURACIL [Suspect]
     Dosage: 600MG PER DAY
     Route: 048
     Dates: start: 19840608, end: 19840718
  3. DAONIL [Suspect]
     Dosage: 10MG PER DAY
     Route: 048
     Dates: start: 19840608
  4. METFORMIN HCL [Suspect]
     Dosage: 1G PER DAY
     Route: 048
  5. ALDACTONE [Suspect]
     Dosage: 100MG PER DAY
     Route: 048
  6. PREDNISOLONE [Suspect]
     Indication: ARTHRITIS
     Dosage: 90MG PER DAY
     Route: 048
     Dates: start: 19840301, end: 19841113
  7. CEFOTAXIME SODIUM [Suspect]
     Dosage: 2G PER DAY
     Route: 042
     Dates: start: 19840728, end: 19840816
  8. TOBRAMYCIN SULPHATE [Suspect]
     Dosage: 160MG PER DAY
     Route: 042
     Dates: start: 19840728, end: 19840818
  9. FLUCLOXACILLIN [Suspect]
     Dosage: 4G PER DAY
     Route: 042
     Dates: start: 19840728, end: 19840818
  10. PROGOUT [Suspect]
     Indication: GOUT
     Dosage: 300MG PER DAY
     Route: 048
     Dates: start: 19840930, end: 19841114
  11. BUMETANIDE [Suspect]
     Indication: SHOCK
     Dosage: 2MG PER DAY
     Route: 048
     Dates: start: 19840930, end: 19841120
  12. CAPTOPRIL [Suspect]
     Indication: CARDIOMYOPATHY
     Dosage: 12MG PER DAY
     Route: 048
     Dates: start: 19840930, end: 19841113
  13. HYDRALAZINE HCL [Concomitant]
     Dosage: 150MG PER DAY
     Route: 048
  14. FRUSEMIDE [Concomitant]
     Dosage: 500MG PER DAY
     Route: 048

REACTIONS (16)
  - AGRANULOCYTOSIS [None]
  - ANOREXIA [None]
  - APATHY [None]
  - COOMBS POSITIVE HAEMOLYTIC ANAEMIA [None]
  - EOSINOPHILIA [None]
  - FATIGUE [None]
  - HYPONATRAEMIA [None]
  - LEUKOCYTOSIS [None]
  - MALAISE [None]
  - PNEUMONIA [None]
  - PRURITUS [None]
  - PYREXIA [None]
  - RASH ERYTHEMATOUS [None]
  - RASH MACULO-PAPULAR [None]
  - RENAL FAILURE ACUTE [None]
  - RENAL IMPAIRMENT [None]
